FAERS Safety Report 8779429 (Version 2)
Quarter: 2012Q4

REPORT INFORMATION
  Report Type: 
  Country: US (occurrence: US)
  Receive Date: 20120912
  Receipt Date: 20120928
  Transmission Date: 20130627
  Serious: No
  Sender: FDA-Public Use
  Company Number: US-JNJFOC-20120901223

PATIENT
  Age: 70 None
  Sex: Male
  Weight: 115.67 kg

DRUGS (8)
  1. XARELTO [Suspect]
     Indication: CEREBROVASCULAR ACCIDENT PROPHYLAXIS
     Route: 048
     Dates: start: 201208, end: 20120905
  2. XARELTO [Suspect]
     Indication: ATRIAL FIBRILLATION
     Route: 048
     Dates: start: 201208, end: 20120905
  3. DIOVAN [Concomitant]
     Indication: HYPERTENSION
     Dosage: 320/25mg/tablet/320/25
     Dates: start: 2009
  4. ALPHAGAN [Concomitant]
     Indication: GLAUCOMA
     Route: 001
     Dates: start: 2007
  5. MULTIVITAMINS [Concomitant]
  6. GLUCOSAMINE [Concomitant]
  7. SELENIUM [Concomitant]
  8. MAGNESIUM OXIDE [Concomitant]

REACTIONS (6)
  - Joint lock [Not Recovered/Not Resolved]
  - Self-injurious ideation [Unknown]
  - Muscle tightness [Not Recovered/Not Resolved]
  - Muscle spasms [Not Recovered/Not Resolved]
  - Joint swelling [Not Recovered/Not Resolved]
  - Arthralgia [Not Recovered/Not Resolved]
